FAERS Safety Report 13832630 (Version 1)
Quarter: 2017Q3

REPORT INFORMATION
  Report Type: Spontaneous
  Country: US (occurrence: US)
  Receive Date: 20170803
  Receipt Date: 20170803
  Transmission Date: 20171127
  Serious: Yes (Other)
  Sender: FDA-Public Use
  Company Number: None

PATIENT
  Age: 45 Month
  Sex: Female
  Weight: 81 kg

DRUGS (4)
  1. CIPROFLAXACN [Concomitant]
  2. OXYCODONE AND ACETAMINOPHEN [Suspect]
     Active Substance: ACETAMINOPHEN\OXYCODONE HYDROCHLORIDE
     Indication: PYELONEPHRITIS
     Dosage: ?          QUANTITY:15 TABLET(S);?
     Route: 048
     Dates: start: 20170801
  3. ONDANSETRON [Concomitant]
     Active Substance: ONDANSETRON
  4. OXYCOD/ACETAMIN [Concomitant]

REACTIONS (2)
  - Product substitution issue [None]
  - Nasal disorder [None]

NARRATIVE: CASE EVENT DATE: 20170802
